FAERS Safety Report 26001262 (Version 1)
Quarter: 2025Q4

REPORT INFORMATION
  Report Type: Report from Study
  Country: PK (occurrence: PK)
  Receive Date: 20251105
  Receipt Date: 20251105
  Transmission Date: 20260117
  Serious: Yes (Other)
  Sender: ROCHE
  Company Number: PK-ROCHE-10000426409

PATIENT
  Age: 46 Year
  Sex: Female

DRUGS (10)
  1. PERJETA [Suspect]
     Active Substance: PERTUZUMAB
     Indication: Neoadjuvant therapy
     Route: 042
     Dates: start: 20250514
  2. PERJETA [Suspect]
     Active Substance: PERTUZUMAB
     Indication: Breast cancer
  3. PERJETA [Suspect]
     Active Substance: PERTUZUMAB
     Indication: Inflammatory carcinoma of the breast
  4. PERJETA [Suspect]
     Active Substance: PERTUZUMAB
     Indication: Breast cancer metastatic
  5. PERJETA [Suspect]
     Active Substance: PERTUZUMAB
     Indication: Metastatic neoplasm
  6. PERJETA [Suspect]
     Active Substance: PERTUZUMAB
     Indication: HER2 positive breast cancer
  7. PERJETA [Suspect]
     Active Substance: PERTUZUMAB
     Indication: Breast cancer
  8. PERJETA [Suspect]
     Active Substance: PERTUZUMAB
     Indication: Breast cancer recurrent
  9. HERCEPTIN [Suspect]
     Active Substance: TRASTUZUMAB
     Indication: Breast cancer
     Route: 058
     Dates: start: 20250514
  10. KADCYLA [Suspect]
     Active Substance: ADO-TRASTUZUMAB EMTANSINE
     Indication: Breast cancer
     Route: 065

REACTIONS (1)
  - Metastatic neoplasm [Unknown]
